FAERS Safety Report 9199984 (Version 1)
Quarter: 2013Q1

REPORT INFORMATION
  Report Type: Spontaneous
  Country: US (occurrence: US)
  Receive Date: 20130329
  Receipt Date: 20130329
  Transmission Date: 20140127
  Serious: Yes (Hospitalization)
  Sender: FDA-Public Use
  Company Number: US-GLAXOSMITHKLINE-A1016719A

PATIENT
  Age: 65 Year
  Sex: Female

DRUGS (11)
  1. ADVAIR [Suspect]
     Indication: CHRONIC OBSTRUCTIVE PULMONARY DISEASE
     Dosage: 1PUFF TWICE PER DAY
     Route: 055
  2. PROAIR HFA [Concomitant]
  3. MULTIVITAMINS [Concomitant]
  4. METFORMIN [Concomitant]
  5. LIPITOR [Concomitant]
  6. XELODA [Concomitant]
  7. TYLENOL [Concomitant]
  8. LOPRESSOR [Concomitant]
  9. PRILOSEC [Concomitant]
  10. FERROUS SULFATE [Concomitant]
  11. WARFARIN [Concomitant]

REACTIONS (3)
  - Myocardial infarction [Recovering/Resolving]
  - Coronary artery bypass [Recovering/Resolving]
  - Thrombosis [Unknown]
